FAERS Safety Report 26097853 (Version 1)
Quarter: 2025Q4

REPORT INFORMATION
  Report Type: Other
  Country: CA (occurrence: CA)
  Receive Date: 20251127
  Receipt Date: 20251127
  Transmission Date: 20260117
  Serious: Yes (Other)
  Sender: LUPIN
  Company Number: CA-LUPIN PHARMACEUTICALS INC.-2025-10601

PATIENT
  Age: 40 Year
  Sex: Female

DRUGS (20)
  1. PROPRANOLOL [Suspect]
     Active Substance: PROPRANOLOL HYDROCHLORIDE
     Indication: Migraine
     Dosage: UNK
     Route: 065
  2. ACETAMINOPHEN [Suspect]
     Active Substance: ACETAMINOPHEN
     Indication: Migraine
     Dosage: UNK
     Route: 065
  3. AIMOVIG [Suspect]
     Active Substance: ERENUMAB-AOOE
     Indication: Migraine
     Dosage: UNK
  4. ALLOPURINOL [Suspect]
     Active Substance: ALLOPURINOL
     Indication: Migraine
     Dosage: UNK
     Route: 065
  5. BOTULINUM TOXIN TYPE A [Suspect]
     Active Substance: BOTULINUM TOXIN TYPE A
     Indication: Migraine
     Dosage: UNK
     Route: 065
  6. CODEINE PHOSPHATE [Suspect]
     Active Substance: CODEINE PHOSPHATE
     Indication: Product used for unknown indication
     Dosage: UNK
     Route: 065
  7. CYCLOBENZAPRINE [Suspect]
     Active Substance: CYCLOBENZAPRINE
     Indication: Product used for unknown indication
     Dosage: UNK
     Route: 065
  8. DICLOFENAC [Suspect]
     Active Substance: DICLOFENAC
     Indication: Product used for unknown indication
     Dosage: UNK
     Route: 065
  9. ERGOCALCIFEROL [Suspect]
     Active Substance: ERGOCALCIFEROL
     Indication: Migraine
     Dosage: UNK
     Route: 065
  10. FLUPENTIXOL [Suspect]
     Active Substance: FLUPENTIXOL
     Indication: Migraine
     Dosage: 1 DOSAGE FORM
     Route: 065
  11. GRAVOL [Suspect]
     Active Substance: DIMENHYDRINATE
     Indication: Migraine
     Dosage: UNK
     Route: 065
  12. HEXACHLOROPHENE [Suspect]
     Active Substance: HEXACHLOROPHENE
     Indication: Product used for unknown indication
     Dosage: UNK
     Route: 065
  13. LIDOCAINE [Suspect]
     Active Substance: LIDOCAINE
     Indication: Product used for unknown indication
     Dosage: UNK
     Route: 065
  14. MEFENAMIC ACID [Suspect]
     Active Substance: MEFENAMIC ACID
     Indication: Migraine
     Dosage: UNK
     Route: 065
  15. MORPHINE SULFATE [Suspect]
     Active Substance: MORPHINE SULFATE
     Indication: Migraine
     Dosage: UNK
     Route: 065
  16. NEURONTIN [Suspect]
     Active Substance: GABAPENTIN
     Indication: Migraine
     Dosage: UNK
     Route: 065
  17. NORTRIPTYLINE [Suspect]
     Active Substance: NORTRIPTYLINE
     Indication: Migraine
     Dosage: 1 DOSAGE FORM
     Route: 065
  18. PYRIDOXINE [Suspect]
     Active Substance: PYRIDOXINE
     Indication: Migraine
     Dosage: UNK
     Route: 065
  19. TRYPTOPHAN [Suspect]
     Active Substance: TRYPTOPHAN
     Indication: Product used for unknown indication
     Dosage: UNK
     Route: 065
  20. ZOLMITRIPTAN [Suspect]
     Active Substance: ZOLMITRIPTAN
     Indication: Migraine
     Dosage: 1 DOSAGE FORM
     Route: 065

REACTIONS (18)
  - Disturbance in attention [Unknown]
  - Vascular malformation [Unknown]
  - Discomfort [Unknown]
  - Dizziness [Unknown]
  - Drug intolerance [Unknown]
  - Headache [Unknown]
  - Fatigue [Unknown]
  - Hypotension [Unknown]
  - Mastoiditis [Unknown]
  - Myalgia [Unknown]
  - Nausea [Unknown]
  - Otitis media [Unknown]
  - Paranasal cyst [Unknown]
  - Stress [Unknown]
  - Tremor [Unknown]
  - Therapeutic response decreased [Unknown]
  - Off label use [Unknown]
  - Drug ineffective for unapproved indication [Unknown]
